FAERS Safety Report 8450636-6 (Version None)
Quarter: 2012Q2

REPORT INFORMATION
  Report Type: 
  Country: None (occurrence: None)
  Receive Date: 20120620
  Receipt Date: 20120611
  Transmission Date: 20120825
  Serious: Yes (Hospitalization)
  Sender: FDA-Public Use
  Company Number: US-ASTRAZENECA-2012SE38951

PATIENT
  Age: 74 Year
  Sex: Female
  Weight: 79.8 kg

DRUGS (2)
  1. NEXIUM [Suspect]
     Indication: ULCER HAEMORRHAGE
     Route: 048
  2. LOT OF MEDICATION [Concomitant]

REACTIONS (6)
  - LIMB DISCOMFORT [None]
  - OFF LABEL USE [None]
  - INTENTIONAL DRUG MISUSE [None]
  - CHOLELITHIASIS [None]
  - INFLUENZA LIKE ILLNESS [None]
  - ABDOMINAL PAIN UPPER [None]
